FAERS Safety Report 14806480 (Version 1)
Quarter: 2018Q2

REPORT INFORMATION
  Report Type: Spontaneous
  Country: IT (occurrence: IT)
  Receive Date: 20180425
  Receipt Date: 20180425
  Transmission Date: 20180711
  Serious: Yes (Hospitalization)
  Sender: FDA-Public Use
  Company Number: IT-TEVA-2018-IT-886078

PATIENT
  Age: 86 Year
  Sex: Female

DRUGS (3)
  1. DULOXETINE. [Suspect]
     Active Substance: DULOXETINE
     Indication: BLUNTED AFFECT
     Route: 048
  2. PLAQUENIL [Concomitant]
     Active Substance: HYDROXYCHLOROQUINE SULFATE
  3. PALEXIA 75 MG COMPRESSE RIVESTITE CON FILM [Concomitant]

REACTIONS (5)
  - Cognitive disorder [Unknown]
  - Somnolence [Unknown]
  - Incontinence [Unknown]
  - Nausea [Unknown]
  - Confusional state [Unknown]
